FAERS Safety Report 8374454-2 (Version None)
Quarter: 2012Q2

REPORT INFORMATION
  Report Type: 
  Country: None (occurrence: None)
  Receive Date: 20120521
  Receipt Date: 20120502
  Transmission Date: 20120825
  Serious: No
  Sender: FDA-Public Use
  Company Number: US-ASTRAZENECA-2012SE25833

PATIENT
  Age: 36 Year
  Sex: Male
  Weight: 104.3 kg

DRUGS (15)
  1. SEROQUEL [Suspect]
     Indication: SLEEP DISORDER
     Route: 048
     Dates: start: 20090101, end: 20111231
  2. SEROQUEL [Suspect]
     Indication: STRESS
     Route: 048
     Dates: start: 20090101, end: 20111231
  3. SEROQUEL [Suspect]
     Route: 048
  4. ALPRAZOLAM [Concomitant]
  5. SEROQUEL [Suspect]
     Indication: POST-TRAUMATIC STRESS DISORDER
     Route: 048
     Dates: start: 20090101, end: 20111231
  6. SEROQUEL [Suspect]
     Route: 048
  7. SEROQUEL [Suspect]
     Route: 048
  8. SILENOR [Concomitant]
  9. ZYPREXA [Concomitant]
  10. SEROQUEL [Suspect]
     Route: 048
  11. KLONOPIN [Concomitant]
  12. CYMBALTA [Concomitant]
  13. XANAX [Concomitant]
  14. SEROQUEL [Suspect]
     Indication: BIPOLAR DISORDER
     Route: 048
     Dates: start: 20090101, end: 20111231
  15. SAPHRIS [Concomitant]

REACTIONS (2)
  - INSOMNIA [None]
  - INTENTIONAL DRUG MISUSE [None]
